FAERS Safety Report 16996413 (Version 2)
Quarter: 2019Q4

REPORT INFORMATION
  Report Type: Spontaneous
  Country: HR (occurrence: HR)
  Receive Date: 20191105
  Receipt Date: 20191122
  Transmission Date: 20200122
  Serious: Yes (Death, Hospitalization, Other)
  Sender: FDA-Public Use
  Company Number: HR-009507513-1911HRV000273

PATIENT
  Age: 55 Year
  Sex: Female

DRUGS (9)
  1. JANUMET [Suspect]
     Active Substance: METFORMIN HYDROCHLORIDE\SITAGLIPTIN PHOSPHATE
     Indication: TYPE 2 DIABETES MELLITUS
     Dosage: 1 TABLET TWICE A DAY
     Route: 048
     Dates: start: 20190524, end: 20191031
  2. BRUFEN [Concomitant]
     Active Substance: IBUPROFEN
     Dosage: AS NEEDED
  3. NORMABEL [Concomitant]
     Active Substance: DIAZEPAM
     Dosage: AS NEEDED
  4. TRITACE [Concomitant]
     Active Substance: RAMIPRIL
     Dosage: 1 TABLET PER DAY
     Route: 048
  5. CONTROLOC (PANTOPRAZOLE) [Concomitant]
     Dosage: 1 TABLET PER DAY
     Route: 048
  6. JENTADUETO [Concomitant]
     Active Substance: LINAGLIPTIN\METFORMIN HYDROCHLORIDE
     Dosage: UNK
     Dates: start: 20190215
  7. NEBIVOLOL. [Concomitant]
     Active Substance: NEBIVOLOL
     Dosage: 1/2 TABLET PER DAY
     Route: 048
  8. TRITAZIDE [Concomitant]
     Active Substance: HYDROCHLOROTHIAZIDE\RAMIPRIL
     Dosage: 1 TABLET PER DAY
     Route: 048
  9. SORTIS [Concomitant]
     Active Substance: ATORVASTATIN
     Dosage: 1 TABLET PER DAY
     Route: 048

REACTIONS (2)
  - Pancreatic carcinoma [Fatal]
  - Blood glucose increased [Unknown]

NARRATIVE: CASE EVENT DATE: 201910
